APPROVED DRUG PRODUCT: OJEMDA
Active Ingredient: TOVORAFENIB
Strength: 25MG/ML
Dosage Form/Route: FOR SUSPENSION;ORAL
Application: N218033 | Product #001
Applicant: DAY ONE BIOPHARMACEUTICALS INC
Approved: Apr 23, 2024 | RLD: Yes | RS: Yes | Type: RX

PATENTS:
Patent 8293752 | Expires: Aug 4, 2031
Patent 10426782 | Expires: Jun 23, 2035

EXCLUSIVITY:
Code: NCE | Date: Apr 23, 2029
Code: ODE-478 | Date: Apr 23, 2031